FAERS Safety Report 5344135-8 (Version None)
Quarter: 2007Q2

REPORT INFORMATION
  Report Type: 
  Country: None (occurrence: None)
  Receive Date: 20070604
  Receipt Date: 20070523
  Transmission Date: 20071010
  Serious: Yes (Hospitalization)
  Sender: FDA-Public Use
  Company Number: HQWYE317423MAY07

PATIENT
  Age: 89 Year
  Sex: Female

DRUGS (5)
  1. CORDARONE [Suspect]
     Route: 048
  2. INDAPAMIDE [Concomitant]
     Route: 048
  3. TRIATEC [Concomitant]
     Route: 048
  4. BISOPROLOL FUMARATE [Interacting]
     Route: 048
  5. VASTAREL [Concomitant]
     Route: 048

REACTIONS (6)
  - BRONCHITIS [None]
  - DRUG INTERACTION [None]
  - FALL [None]
  - GENERAL PHYSICAL HEALTH DETERIORATION [None]
  - RHABDOMYOLYSIS [None]
  - SINUS BRADYCARDIA [None]
